FAERS Safety Report 19814210 (Version 1)
Quarter: 2021Q3

REPORT INFORMATION
  Report Type: Spontaneous
  Country: DE (occurrence: DE)
  Receive Date: 20210909
  Receipt Date: 20210909
  Transmission Date: 20211014
  Serious: Yes (Hospitalization, Other)
  Sender: FDA-Public Use
  Company Number: DE-ALLERGAN-2131314US

PATIENT
  Sex: Female
  Weight: 76 kg

DRUGS (12)
  1. RIVAROXABAN [Suspect]
     Active Substance: RIVAROXABAN
     Indication: PRODUCT USED FOR UNKNOWN INDICATION
     Dosage: ACTUAL:1?0?0?0
     Route: 065
  2. KALIUMCITRAT [Concomitant]
     Active Substance: POTASSIUM CITRATE
     Dosage: ACTUAL:2157.3 MG, 0?1?0?0
     Route: 065
  3. METOPROLOL. [Concomitant]
     Active Substance: METOPROLOL
     Dosage: ACTUAL:1?0?0?0
     Route: 065
  4. ESCITALOPRAM OXALATE ? BP [Suspect]
     Active Substance: ESCITALOPRAM OXALATE
     Indication: PRODUCT USED FOR UNKNOWN INDICATION
     Dosage: ACTUAL: 1?0?0?0
     Route: 065
  5. CLOPIDOGREL [Suspect]
     Active Substance: CLOPIDOGREL BISULFATE
     Indication: PRODUCT USED FOR UNKNOWN INDICATION
     Dosage: ACTUAL:1?0?0?0
     Route: 065
  6. LERCANIDIPIN [Concomitant]
     Active Substance: LERCANIDIPINE
     Dosage: ACTUAL:1?0?1?0
     Route: 065
  7. ZOLPIDEM [Concomitant]
     Active Substance: ZOLPIDEM TARTRATE
     Dosage: ACTUAL: 0?0?0?1
     Route: 065
  8. PANTOPRAZOL [Concomitant]
     Active Substance: PANTOPRAZOLE SODIUM
     Dosage: ACTUAL:1?0?0?0
     Route: 065
  9. ROSUVASTATIN. [Concomitant]
     Active Substance: ROSUVASTATIN
     Dosage: ACTUAL: 0?0?1?0
     Route: 065
  10. TORASEMID [Concomitant]
     Active Substance: TORSEMIDE
     Dosage: ACTUAL:2?2?0?0
     Route: 065
  11. VALSARTAN. [Concomitant]
     Active Substance: VALSARTAN
     Dosage: ACTUAL:1?0?1?0
     Route: 065
  12. NATRIUMCHLORID [Concomitant]
     Active Substance: SODIUM CHLORIDE
     Dosage: ACTUAL:1?0?1?0
     Route: 065

REACTIONS (2)
  - Gastrointestinal haemorrhage [Unknown]
  - Haemoglobin decreased [Unknown]
